FAERS Safety Report 6272167-4 (Version None)
Quarter: 2009Q3

REPORT INFORMATION
  Report Type: 
  Country: None (occurrence: None)
  Receive Date: 20090717
  Receipt Date: 20090708
  Transmission Date: 20100115
  Serious: Yes (Other)
  Sender: FDA-Public Use
  Company Number: US-JNJFOC-20090703304

PATIENT
  Age: 46 Year
  Sex: Female

DRUGS (2)
  1. REMICADE [Suspect]
     Indication: POLYARTHRITIS
     Route: 042
  2. METHOTREXATE [Concomitant]
     Indication: POLYARTHRITIS
     Route: 065

REACTIONS (1)
  - NOCARDIOSIS [None]
